FAERS Safety Report 4695127-3 (Version None)
Quarter: 2005Q2

REPORT INFORMATION
  Report Type: 
  Country: None (occurrence: None)
  Receive Date: 20050620
  Receipt Date: 20050216
  Transmission Date: 20051028
  Serious: Yes (Hospitalization, Disabling)
  Sender: FDA-Public Use
  Company Number: US-MERCK-0502USA03373

PATIENT
  Age: 61 Year
  Sex: Male
  Weight: 99 kg

DRUGS (3)
  1. VIOXX [Suspect]
     Indication: ARTHRALGIA
     Route: 048
     Dates: start: 20030913, end: 20040830
  2. LIPITOR [Concomitant]
     Route: 065
     Dates: start: 20030901
  3. TRAZODONE HYDROCHLORIDE [Concomitant]
     Route: 065
     Dates: start: 20040103

REACTIONS (5)
  - ADJUSTMENT DISORDER WITH ANXIETY [None]
  - CEREBROVASCULAR ACCIDENT [None]
  - COGNITIVE DISORDER [None]
  - HAEMORRHAGE INTRACRANIAL [None]
  - WEIGHT DECREASED [None]
